FAERS Safety Report 4473859-X (Version None)
Quarter: 2004Q4

REPORT INFORMATION
  Report Type: 
  Country: None (occurrence: None)
  Receive Date: 20041008
  Receipt Date: 20041008
  Transmission Date: 20050328
  Serious: Yes (Death)
  Sender: FDA-Public Use
  Company Number: None

PATIENT
  Age: 73 Year
  Sex: Female
  Weight: 108 kg

DRUGS (2)
  1. LOVENOX [Suspect]
     Indication: EMBOLISM
     Dosage: 108 MG Q12 H SUBCUTANEO
     Route: 058
     Dates: start: 20040801, end: 20040808
  2. AGRENOX [Concomitant]

REACTIONS (2)
  - GENERAL PHYSICAL HEALTH DETERIORATION [None]
  - RETROPERITONEAL HAEMATOMA [None]
